FAERS Safety Report 7029221-9 (Version None)
Quarter: 2010Q3

REPORT INFORMATION
  Report Type: 
  Country: None (occurrence: None)
  Receive Date: 20100930
  Receipt Date: 20100920
  Transmission Date: 20110219
  Serious: Yes (Death, Life-Threatening, Hospitalization, Other)
  Sender: FDA-Public Use
  Company Number: 2010AC000291

PATIENT
  Age: 62 Year
  Sex: Female

DRUGS (17)
  1. DIGOXIN [Suspect]
     Dosage: PO
     Route: 048
     Dates: start: 20060301, end: 20080601
  2. DIGOXIN [Suspect]
     Dosage: 0.125 MG; QD; PO
     Route: 048
     Dates: start: 20070401, end: 20070501
  3. ASPIRIN [Concomitant]
  4. ZOCOR [Concomitant]
  5. IRON [Concomitant]
  6. COREG [Concomitant]
  7. LASIX [Concomitant]
  8. PREVACID [Concomitant]
  9. COUMADIN [Concomitant]
  10. VICODIN [Concomitant]
  11. ZYLOPRIM [Concomitant]
  12. ASPIRIN [Concomitant]
  13. POTASSIUM [Concomitant]
  14. LEVAQUIN [Concomitant]
  15. COLCHICINE [Concomitant]
  16. METHYLPRDNISOLONE [Concomitant]
  17. DIGOXIN [Suspect]
     Dosage: 0.125 MG; QD; PO
     Route: 048
     Dates: start: 20070501, end: 20070508

REACTIONS (24)
  - ACUTE PULMONARY OEDEMA [None]
  - ANAEMIA [None]
  - ANXIETY [None]
  - ARTHRALGIA [None]
  - BLOOD CREATININE INCREASED [None]
  - BLOOD UREA INCREASED [None]
  - CARDIAC DISORDER [None]
  - CARDIO-RESPIRATORY ARREST [None]
  - CREPITATIONS [None]
  - GINGIVAL BLEEDING [None]
  - GOUT [None]
  - HAEMARTHROSIS [None]
  - INTERNATIONAL NORMALISED RATIO INCREASED [None]
  - JOINT EFFUSION [None]
  - JOINT SWELLING [None]
  - MULTIPLE INJURIES [None]
  - NAUSEA [None]
  - PAIN [None]
  - PALLOR [None]
  - PROTHROMBIN TIME PROLONGED [None]
  - SWELLING [None]
  - TENDERNESS [None]
  - URINARY TRACT INFECTION [None]
  - VOMITING [None]
